FAERS Safety Report 7139110-7 (Version None)
Quarter: 2010Q4

REPORT INFORMATION
  Report Type: 
  Country: None (occurrence: None)
  Receive Date: 20101206
  Receipt Date: 20101129
  Transmission Date: 20110411
  Serious: Yes (Other)
  Sender: FDA-Public Use
  Company Number: B0687549A

PATIENT
  Sex: Female

DRUGS (4)
  1. LAMICTIN [Suspect]
     Dosage: 25MG PER DAY
     Route: 065
     Dates: start: 20101101
  2. MIRELLE [Concomitant]
     Indication: CONTRACEPTION
     Route: 048
  3. MOLIPAXIN [Concomitant]
     Indication: DEPRESSION
     Dosage: 50MG PER DAY
     Dates: start: 20101101
  4. VENLAFAXINE HCL [Concomitant]
     Dosage: 150MG PER DAY

REACTIONS (2)
  - EOSINOPHIL COUNT INCREASED [None]
  - MENSTRUAL DISORDER [None]
